FAERS Safety Report 12678209 (Version 6)
Quarter: 2020Q3

REPORT INFORMATION
  Report Type: Report from Study
  Country: None (occurrence: US)
  Receive Date: 20160823
  Receipt Date: 20200904
  Transmission Date: 20201102
  Serious: Yes (Other)
  Sender: FDA-Public Use
  Company Number: US-ABBVIE-16K-163-1703641-00

PATIENT
  Sex: Female

DRUGS (2)
  1. HUMIRA [Suspect]
     Active Substance: ADALIMUMAB
     Indication: RHEUMATOID ARTHRITIS
     Route: 058
     Dates: start: 20120516
  2. HUMIRA [Suspect]
     Active Substance: ADALIMUMAB
     Dosage: DOSE DECREASED
     Route: 058

REACTIONS (20)
  - Spinal operation [Recovered/Resolved]
  - Headache [Unknown]
  - Hypertension [Recovered/Resolved]
  - Drug ineffective [Not Recovered/Not Resolved]
  - Musculoskeletal disorder [Unknown]
  - Neck pain [Unknown]
  - Intervertebral disc operation [Recovered/Resolved]
  - Cutaneous lupus erythematosus [Unknown]
  - Scoliosis [Unknown]
  - Arthralgia [Recovered/Resolved]
  - Pain [Recovered/Resolved]
  - Exostosis [Unknown]
  - Post procedural complication [Unknown]
  - Procedural pain [Unknown]
  - Platelet count decreased [Unknown]
  - Neuropathy peripheral [Recovered/Resolved]
  - Inflammation [Unknown]
  - Pain in extremity [Recovering/Resolving]
  - Joint swelling [Recovered/Resolved]
  - Peripheral swelling [Recovered/Resolved]

NARRATIVE: CASE EVENT DATE: 2015
